FAERS Safety Report 12471256 (Version 1)
Quarter: 2016Q2

REPORT INFORMATION
  Report Type: Spontaneous
  Country: US (occurrence: US)
  Receive Date: 20160616
  Receipt Date: 20160616
  Transmission Date: 20160815
  Serious: No
  Sender: FDA-Public Use
  Company Number: US-SHIRE-US201607259

PATIENT
  Age: 43 Year
  Sex: Female
  Weight: 51.7 kg

DRUGS (4)
  1. LIALDA [Suspect]
     Active Substance: MESALAMINE
     Indication: PSORIATIC ARTHROPATHY
     Dosage: 2.4 G (TWO 1.2 G TABLETS), 1X/DAY:QD
     Route: 048
     Dates: start: 2016, end: 201606
  2. LIALDA [Suspect]
     Active Substance: MESALAMINE
     Dosage: 1.2 G, QOD
     Route: 048
     Dates: start: 201606
  3. LIALDA [Suspect]
     Active Substance: MESALAMINE
     Dosage: 2.4 G (TWO 1.2 G TABLETS), 1X/DAY:QD
     Route: 048
     Dates: start: 201606
  4. NATURE-THROID [Concomitant]
     Active Substance: THYROID, PORCINE
     Indication: THYROID DISORDER
     Dosage: 160 MG (5 X 32 MG), 1X/DAY:QD
     Route: 048

REACTIONS (4)
  - Anaemia [Unknown]
  - Product use issue [Not Recovered/Not Resolved]
  - Serum ferritin decreased [Unknown]
  - Contraindicated drug administered [Not Recovered/Not Resolved]

NARRATIVE: CASE EVENT DATE: 2016
